FAERS Safety Report 16138199 (Version 1)
Quarter: 2019Q1

REPORT INFORMATION
  Report Type: Spontaneous
  Country: FR (occurrence: FR)
  Receive Date: 20190330
  Receipt Date: 20190330
  Transmission Date: 20190418
  Serious: Yes (Hospitalization)
  Sender: FDA-Public Use
  Company Number: FR-ACCORD-117109

PATIENT
  Age: 88 Year
  Sex: Male
  Weight: 59 kg

DRUGS (9)
  1. ADENURIC [Suspect]
     Active Substance: FEBUXOSTAT
     Indication: GOUT
     Dosage: STRENGTH:80 MG
     Route: 048
     Dates: end: 20180530
  2. STAGID [Suspect]
     Active Substance: METFORMIN PAMOATE
     Indication: DIABETES MELLITUS
     Dosage: STRENGTH:700 MG, SCORED TABLET
     Route: 048
     Dates: end: 20180530
  3. LERCAN [Suspect]
     Active Substance: LERCANIDIPINE
     Indication: HYPERTENSION
     Dosage: STRENGTH: 20MG
     Route: 048
     Dates: end: 20180531
  4. KARDEGIC [Concomitant]
     Active Substance: ASPIRIN DL-LYSINE
     Dosage: STRENGTH:75 MG POWDER FOR ORAL SOLUTION IN SACHET-DOSE
  5. COTRIATEC [Suspect]
     Active Substance: HYDROCHLOROTHIAZIDE\RAMIPRIL
     Indication: HYPERTENSION
     Route: 048
     Dates: start: 201011, end: 20180530
  6. RANITIDINE. [Concomitant]
     Active Substance: RANITIDINE
  7. SIMVASTATIN. [Suspect]
     Active Substance: SIMVASTATIN
     Indication: DYSLIPIDAEMIA
     Route: 048
     Dates: end: 20180530
  8. NICORANDIL [Concomitant]
     Active Substance: NICORANDIL
  9. BISOPROLOL [Concomitant]
     Active Substance: BISOPROLOL

REACTIONS (2)
  - Hyperkalaemia [Recovered/Resolved]
  - Acute kidney injury [Recovered/Resolved]

NARRATIVE: CASE EVENT DATE: 20180530
